FAERS Safety Report 6923039-0 (Version None)
Quarter: 2010Q3

REPORT INFORMATION
  Report Type: 
  Country: None (occurrence: None)
  Receive Date: 20100813
  Receipt Date: 20100806
  Transmission Date: 20110219
  Serious: Yes (Hospitalization, Other)
  Sender: FDA-Public Use
  Company Number: HU-AMGEN-KDC416517

PATIENT
  Sex: Female

DRUGS (13)
  1. DENOSUMAB [Suspect]
     Indication: OSTEOPOROSIS POSTMENOPAUSAL
     Route: 058
     Dates: start: 20080306, end: 20100311
  2. VINPOCETINE [Concomitant]
     Route: 048
     Dates: start: 19800101
  3. FOSINOPRIL SODIUM [Concomitant]
     Route: 048
     Dates: start: 20050101
  4. ASPIRIN [Concomitant]
     Route: 048
     Dates: start: 20050419
  5. SIMVASTATIN [Concomitant]
     Route: 048
     Dates: start: 20050420
  6. FUROSEMID [Concomitant]
     Route: 048
     Dates: start: 20080814
  7. POTASSIUM CHLORIDE [Concomitant]
     Route: 048
     Dates: start: 20080814
  8. CALCICHEW D3 [Concomitant]
     Route: 048
     Dates: start: 20090312
  9. ALPRAZOLAM [Concomitant]
     Route: 048
     Dates: start: 20090330
  10. NITROMINT [Concomitant]
     Route: 048
     Dates: start: 20090330
  11. NIFEDIPINE [Concomitant]
     Route: 048
     Dates: start: 20090330
  12. VOLTAREN [Concomitant]
     Route: 048
     Dates: start: 20090330
  13. METAMIZOLE [Concomitant]
     Route: 048
     Dates: start: 20090330

REACTIONS (3)
  - OSTEOMYELITIS [None]
  - OSTEONECROSIS OF JAW [None]
  - PERIODONTAL DISEASE [None]
